FAERS Safety Report 19581696 (Version 1)
Quarter: 2021Q3

REPORT INFORMATION
  Report Type: Spontaneous
  Country: US (occurrence: US)
  Receive Date: 20210720
  Receipt Date: 20210720
  Transmission Date: 20211014
  Serious: No
  Sender: FDA-Public Use
  Company Number: US-ORGANON-O2107USA001213

PATIENT
  Sex: Female

DRUGS (1)
  1. NEXPLANON [Suspect]
     Active Substance: ETONOGESTREL
     Dosage: 1 IMPLANT (DOSE/FREQUECNY REPORTED AS 68 MG)
     Route: 059

REACTIONS (4)
  - Complication of device removal [Unknown]
  - No adverse event [Unknown]
  - Device deployment issue [Unknown]
  - Device issue [Unknown]

NARRATIVE: CASE EVENT DATE: 20210712
